FAERS Safety Report 12258273 (Version 1)
Quarter: 2016Q2

REPORT INFORMATION
  Report Type: Spontaneous
  Country: IT (occurrence: IT)
  Receive Date: 20160412
  Receipt Date: 20160412
  Transmission Date: 20160815
  Serious: Yes (Other)
  Sender: FDA-Public Use
  Company Number: IT-TEVA-651212ISR

PATIENT
  Age: 17 Year
  Sex: Female

DRUGS (12)
  1. AMIKACIN [Suspect]
     Active Substance: AMIKACIN
     Dosage: 30 MG/KG DAILY;
  2. LAMIVUDINE. [Concomitant]
     Active Substance: LAMIVUDINE
     Dosage: 8 MG/KG DAILY;
  3. LOPINAVIR [Concomitant]
     Active Substance: LOPINAVIR
     Dosage: 24 MG/KG DAILY;
  4. RIFABUTINE [Concomitant]
     Active Substance: RIFABUTIN
     Dosage: 10 MG/KG DAILY;
  5. PYRAZINAMIDE. [Concomitant]
     Active Substance: PYRAZINAMIDE
     Dosage: 35 MG/KG DAILY;
  6. ISONIAZID. [Concomitant]
     Active Substance: ISONIAZID
  7. COTRIMOXAZOLE [Suspect]
     Active Substance: SULFAMETHOXAZOLE\TRIMETHOPRIM
     Dosage: 15 MG/KG DAILY;
  8. CLARITHROMYCIN. [Concomitant]
     Active Substance: CLARITHROMYCIN
     Route: 048
  9. CLARITHROMYCIN. [Concomitant]
     Active Substance: CLARITHROMYCIN
     Route: 042
  10. ETHAMBUTOL [Concomitant]
     Active Substance: ETHAMBUTOL HYDROCHLORIDE
     Dosage: 20 MG/KG DAILY;
  11. MOXIFLOXACIN. [Concomitant]
     Active Substance: MOXIFLOXACIN
     Dosage: 10 MG/KG DAILY;
  12. ABACAVIR. [Concomitant]
     Active Substance: ABACAVIR
     Dosage: 16 MG/KG DAILY;

REACTIONS (2)
  - Hypoacusis [Unknown]
  - Pancytopenia [Unknown]
